FAERS Safety Report 9647913 (Version 1)
Quarter: 2013Q4

REPORT INFORMATION
  Report Type: Spontaneous
  Country: US (occurrence: US)
  Receive Date: 20131028
  Receipt Date: 20131028
  Transmission Date: 20140711
  Serious: Yes (Death, Hospitalization)
  Sender: FDA-Public Use
  Company Number: US-JNJFOC-20131013007

PATIENT
  Sex: Male

DRUGS (1)
  1. LEVAQUIN [Suspect]
     Indication: LARGE INTESTINE PERFORATION
     Route: 042
     Dates: start: 20130213

REACTIONS (4)
  - Renal failure acute [Fatal]
  - Hepatic failure [Fatal]
  - Cardiac arrest [Fatal]
  - Contraindication to medical treatment [Unknown]
